FAERS Safety Report 22399659 (Version 1)
Quarter: 2023Q2

REPORT INFORMATION
  Report Type: Spontaneous
  Country: ES (occurrence: ES)
  Receive Date: 20230602
  Receipt Date: 20230602
  Transmission Date: 20230721
  Serious: Yes (Hospitalization)
  Sender: FDA-Public Use
  Company Number: None

PATIENT
  Age: 67 Year
  Sex: Male

DRUGS (2)
  1. CIPROFLOXACIN [Suspect]
     Active Substance: CIPROFLOXACIN
     Indication: Respiratory tract infection
     Dosage: 1500 MILLIGRAM DAILY; 750 MG 14 TABLETS 1-0-1, CIPROFLOXACINO (2049A)
     Route: 065
     Dates: start: 20160519, end: 20160525
  2. AMOXICILLIN\CLAVULANIC ACID [Suspect]
     Active Substance: AMOXICILLIN\CLAVULANIC ACID
     Indication: Respiratory tract infection
     Dosage: 3 DOSAGE FORMS DAILY; 875/125 1-1-1, 12 TABLETS, FORM STRENGTH : 875 MG/125 MG
     Route: 065
     Dates: start: 20160511, end: 20160518

REACTIONS (2)
  - Tubulointerstitial nephritis [Not Recovered/Not Resolved]
  - Chronic kidney disease [Not Recovered/Not Resolved]

NARRATIVE: CASE EVENT DATE: 20160523
